FAERS Safety Report 7531516-7 (Version None)
Quarter: 2011Q2

REPORT INFORMATION
  Report Type: 
  Country: None (occurrence: None)
  Receive Date: 20110608
  Receipt Date: 20110525
  Transmission Date: 20111010
  Serious: Yes (Other)
  Sender: FDA-Public Use
  Company Number: PHHY2011DE45626

PATIENT
  Age: 26 Year
  Sex: Female
  Weight: 64 kg

DRUGS (11)
  1. PREDNISOLONE [Suspect]
     Dosage: 5 MG, QD, GW: 14-16
     Route: 048
  2. PREDNISOLONE [Suspect]
     Dosage: 10 MG, QD, GW: 16-20
     Route: 048
  3. PREDNISOLONE [Suspect]
     Dosage: 15 MG, QD, GW: 20-22
     Route: 048
  4. HUMIRA [Concomitant]
     Indication: RHEUMATOID ARTHRITIS
     Dosage: 40 MG, UNK
     Route: 058
  5. ACETAMINOPHEN [Concomitant]
     Indication: RHEUMATOID ARTHRITIS
     Dosage: 3000 MG, QD
     Route: 048
  6. PREDNISOLONE [Suspect]
     Indication: RHEUMATOID ARTHRITIS
     Dosage: 30 MG, QD, GW: 0-14
     Route: 048
  7. PREDNISOLONE [Suspect]
     Dosage: 20 MG, QD, GW: 27-35
     Route: 048
  8. PREDNISOLONE [Suspect]
     Dosage: 15 MG, QD
     Route: 048
  9. VOLTAREN [Suspect]
     Indication: RHEUMATOID ARTHRITIS
     Dosage: 280 MG, QD
     Route: 048
  10. IBUPROFEN [Suspect]
     Indication: RHEUMATOID ARTHRITIS
     Dosage: 600 MG, QD
     Route: 048
  11. FOLIC ACID [Concomitant]
     Indication: PROPHYLAXIS OF NEURAL TUBE DEFECT
     Dosage: UNK
     Route: 048
     Dates: start: 20081115, end: 20090815

REACTIONS (4)
  - PREMATURE RUPTURE OF MEMBRANES [None]
  - OLIGOHYDRAMNIOS [None]
  - DRUG EXPOSURE DURING PREGNANCY [None]
  - PREMATURE DELIVERY [None]
